FAERS Safety Report 6771499-0 (Version None)
Quarter: 2010Q2

REPORT INFORMATION
  Report Type: 
  Country: None (occurrence: None)
  Receive Date: 20100611
  Receipt Date: 20100607
  Transmission Date: 20101027
  Serious: Yes (Other)
  Sender: FDA-Public Use
  Company Number: 2010SP031796

PATIENT
  Age: 61 Year
  Sex: Female

DRUGS (8)
  1. REMERGIL (MIRTAZAPINE /01293201/) [Suspect]
     Indication: DEPRESSION
     Dosage: 30 MG;QD;PO  15 MG;QD
     Route: 048
     Dates: start: 20100305, end: 20100331
  2. REMERGIL (MIRTAZAPINE /01293201/) [Suspect]
     Indication: DEPRESSION
     Dosage: 30 MG;QD;PO  15 MG;QD
     Route: 048
     Dates: start: 20100407
  3. ZYPREXA [Suspect]
     Indication: DRUG USE FOR UNKNOWN INDICATION
     Dosage: 5 MG;PO  5 MG;QD
     Route: 048
     Dates: start: 20100330, end: 20100331
  4. ZYPREXA [Suspect]
     Indication: DRUG USE FOR UNKNOWN INDICATION
     Dosage: 5 MG;PO  5 MG;QD
     Route: 048
     Dates: start: 20100407
  5. DOXEPIN HCL [Suspect]
     Indication: AGITATION
     Dosage: 12.5 MG;IV
     Route: 042
     Dates: start: 20100330, end: 20100330
  6. PANTOZOL [Concomitant]
  7. LORAZEPAM [Concomitant]
  8. HALDOL [Concomitant]

REACTIONS (6)
  - DELIRIUM [None]
  - DEPRESSION [None]
  - EMOTIONAL DISTRESS [None]
  - HALLUCINATION [None]
  - HEART RATE INCREASED [None]
  - RESTLESSNESS [None]
